FAERS Safety Report 11287951 (Version 3)
Quarter: 2015Q3

REPORT INFORMATION
  Report Type: Spontaneous
  Country: US (occurrence: US)
  Receive Date: 20150721
  Receipt Date: 20150819
  Transmission Date: 20151125
  Serious: Yes (Hospitalization)
  Sender: FDA-Public Use
  Company Number: US-B.I. PHARMACEUTICALS,INC./RIDGEFIELD-2015-BI-38274BP

PATIENT
  Sex: Female

DRUGS (4)
  1. CATAPRES-TTS [Suspect]
     Active Substance: CLONIDINE
     Indication: HYPERTENSION
     Dosage: 0.3 MG
     Route: 061
     Dates: start: 2010, end: 2013
  2. ASPIRIN. [Concomitant]
     Active Substance: ASPIRIN
     Indication: PRODUCT USED FOR UNKNOWN INDICATION
     Route: 048
  3. LABETELOL [Concomitant]
     Indication: HYPERTENSION
     Route: 048
  4. CATAPRES-TTS [Suspect]
     Active Substance: CLONIDINE
     Dosage: 0.3 MG
     Route: 061
     Dates: start: 2013

REACTIONS (2)
  - Hypertension [Recovered/Resolved]
  - Blood pressure fluctuation [Not Recovered/Not Resolved]

NARRATIVE: CASE EVENT DATE: 2013
